FAERS Safety Report 26040614 (Version 1)
Quarter: 2025Q4

REPORT INFORMATION
  Report Type: Spontaneous
  Country: US (occurrence: None)
  Receive Date: 20251112
  Receipt Date: 20251112
  Transmission Date: 20260117
  Serious: No
  Sender: FDA-CTU
  Company Number: None

PATIENT
  Sex: Male

DRUGS (2)
  1. ICLUSIG [Suspect]
     Active Substance: PONATINIB HYDROCHLORIDE
     Indication: Acute lymphocytic leukaemia
  2. BLINCYTO [Suspect]
     Active Substance: BLINATUMOMAB

REACTIONS (4)
  - Cardiotoxicity [None]
  - Stent placement [None]
  - Cardiac disorder [None]
  - Therapy cessation [None]
